FAERS Safety Report 7618581-3 (Version None)
Quarter: 2011Q3

REPORT INFORMATION
  Report Type: 
  Country: None (occurrence: None)
  Receive Date: 20110718
  Receipt Date: 20110712
  Transmission Date: 20111222
  Serious: Yes (Hospitalization)
  Sender: FDA-Public Use
  Company Number: JP-PFIZER INC-2011157701

PATIENT
  Age: 72 Year
  Sex: Female

DRUGS (1)
  1. EPLERENONE [Suspect]
     Route: 048

REACTIONS (1)
  - HYPONATRAEMIA [None]
